FAERS Safety Report 22695722 (Version 14)
Quarter: 2024Q2

REPORT INFORMATION
  Report Type: Report from Study
  Country: BE (occurrence: BE)
  Receive Date: 20230712
  Receipt Date: 20240419
  Transmission Date: 20240716
  Serious: Yes (Hospitalization, Other)
  Sender: FDA-Public Use
  Company Number: BE-SA-SAC20230626000718

PATIENT
  Age: 77 Year
  Sex: Male
  Weight: 100 kg

DRUGS (69)
  1. ISATUXIMAB [Suspect]
     Active Substance: ISATUXIMAB
     Indication: Plasma cell myeloma refractory
     Dosage: 940 MG, QW
     Route: 065
     Dates: start: 20221026, end: 20221107
  2. ISATUXIMAB [Suspect]
     Active Substance: ISATUXIMAB
     Dosage: 940 MG, QW
     Route: 065
     Dates: start: 20221116, end: 20221121
  3. ISATUXIMAB [Suspect]
     Active Substance: ISATUXIMAB
     Dosage: 920 MG, BIW
     Dates: start: 20221122, end: 20221206
  4. ISATUXIMAB [Suspect]
     Active Substance: ISATUXIMAB
     Dosage: 930 MG, BIW
     Dates: start: 20221207, end: 20221213
  5. ISATUXIMAB [Suspect]
     Active Substance: ISATUXIMAB
     Dosage: 940 MG, BIW
     Dates: start: 20221221, end: 20230110
  6. ISATUXIMAB [Suspect]
     Active Substance: ISATUXIMAB
     Dosage: 940 MG, BIW
     Dates: start: 20230117, end: 20230130
  7. ISATUXIMAB [Suspect]
     Active Substance: ISATUXIMAB
     Dosage: 900 MG, BIW
     Dates: start: 20230215, end: 20230307
  8. ISATUXIMAB [Suspect]
     Active Substance: ISATUXIMAB
     Dosage: 940 MG, BIW
     Dates: start: 20230315, end: 20230404
  9. ISATUXIMAB [Suspect]
     Active Substance: ISATUXIMAB
     Dosage: 950 MG, BIW
     Dates: start: 20230411, end: 20230502
  10. ISATUXIMAB [Suspect]
     Active Substance: ISATUXIMAB
     Dosage: 950 MG, BIW
     Dates: start: 20230510, end: 20230531
  11. ISATUXIMAB [Suspect]
     Active Substance: ISATUXIMAB
     Dosage: 1000 MG, BIW
     Dates: start: 20230607, end: 20230620
  12. ISATUXIMAB [Suspect]
     Active Substance: ISATUXIMAB
     Dosage: 900 MG, BIW
     Dates: start: 20230718, end: 20230807
  13. ISATUXIMAB [Suspect]
     Active Substance: ISATUXIMAB
     Dosage: 940 MG, BIW
     Dates: start: 20230818, end: 20230907
  14. ISATUXIMAB [Suspect]
     Active Substance: ISATUXIMAB
     Dosage: 950 MG, BIW
     Dates: start: 20230913, end: 20231003
  15. ISATUXIMAB [Suspect]
     Active Substance: ISATUXIMAB
     Dosage: 900 MG, QM
     Dates: start: 20231011, end: 20231031
  16. ISATUXIMAB [Suspect]
     Active Substance: ISATUXIMAB
     Dosage: 900 MG, QM
     Dates: start: 20231108, end: 20231128
  17. ISATUXIMAB [Suspect]
     Active Substance: ISATUXIMAB
     Dosage: 920 MG, QM
     Dates: start: 20231202, end: 20231229
  18. ISATUXIMAB [Suspect]
     Active Substance: ISATUXIMAB
     Dosage: 910 MG, QM
     Dates: start: 20240104, end: 20240124
  19. ISATUXIMAB [Suspect]
     Active Substance: ISATUXIMAB
     Dosage: 900 MG, QD
     Dates: start: 20240202, end: 20240222
  20. ISATUXIMAB [Suspect]
     Active Substance: ISATUXIMAB
     Dosage: 900 MG, QM
     Dates: start: 20240228
  21. POMALIDOMIDE [Suspect]
     Active Substance: POMALIDOMIDE
     Indication: Plasma cell myeloma refractory
     Dosage: 4 MG, QD
     Dates: start: 20221026, end: 20221107
  22. POMALIDOMIDE [Suspect]
     Active Substance: POMALIDOMIDE
     Dosage: 4 MG, QD
     Dates: start: 20221122, end: 20221212
  23. POMALIDOMIDE [Suspect]
     Active Substance: POMALIDOMIDE
     Dosage: 3 MG, QD
     Dates: start: 20221221, end: 20230110
  24. POMALIDOMIDE [Suspect]
     Active Substance: POMALIDOMIDE
     Dosage: 3 MG, QD
     Dates: start: 20230117, end: 20230130
  25. POMALIDOMIDE [Suspect]
     Active Substance: POMALIDOMIDE
     Dosage: 3 MG, QD
     Dates: start: 20230215, end: 20230307
  26. POMALIDOMIDE [Suspect]
     Active Substance: POMALIDOMIDE
     Dosage: 3 MG, QD
     Dates: start: 20230315, end: 20230404
  27. POMALIDOMIDE [Suspect]
     Active Substance: POMALIDOMIDE
     Dosage: 3 MG, QD
     Dates: start: 20230511, end: 20230531
  28. POMALIDOMIDE [Suspect]
     Active Substance: POMALIDOMIDE
     Dosage: 3 MG, QD
     Dates: start: 20230607, end: 20230620
  29. POMALIDOMIDE [Suspect]
     Active Substance: POMALIDOMIDE
     Dosage: 3 MG, QD
     Dates: start: 20230718, end: 20230807
  30. POMALIDOMIDE [Suspect]
     Active Substance: POMALIDOMIDE
     Dosage: 3 MG, QD
     Dates: start: 20230818, end: 20230907
  31. POMALIDOMIDE [Suspect]
     Active Substance: POMALIDOMIDE
     Dosage: 3 MG, QD
     Dates: start: 20230913, end: 20231003
  32. POMALIDOMIDE [Suspect]
     Active Substance: POMALIDOMIDE
     Dosage: 3 MG, QD
     Dates: start: 20231011, end: 20231031
  33. POMALIDOMIDE [Suspect]
     Active Substance: POMALIDOMIDE
     Dosage: 3 MG, QD
     Dates: start: 20231108, end: 20231128
  34. POMALIDOMIDE [Suspect]
     Active Substance: POMALIDOMIDE
     Dosage: 3 MG, QD
     Dates: start: 20231202, end: 20231226
  35. POMALIDOMIDE [Suspect]
     Active Substance: POMALIDOMIDE
     Dosage: 3 MG, QD
     Dates: start: 20240104, end: 20240124
  36. POMALIDOMIDE [Suspect]
     Active Substance: POMALIDOMIDE
     Dosage: 2 MG, QD
     Dates: start: 20240228
  37. DEXAMETHASONE [Suspect]
     Active Substance: DEXAMETHASONE
     Indication: Plasma cell myeloma refractory
     Dosage: 40 MG, QW
     Dates: start: 20221026, end: 20221107
  38. DEXAMETHASONE [Suspect]
     Active Substance: DEXAMETHASONE
     Dosage: 40 MG, QW
     Dates: start: 20221116, end: 20221121
  39. DEXAMETHASONE [Suspect]
     Active Substance: DEXAMETHASONE
     Dosage: 40 MG, QW
     Dates: start: 20221122, end: 20221220
  40. DEXAMETHASONE [Suspect]
     Active Substance: DEXAMETHASONE
     Dosage: 40 MG, QW
     Dates: start: 20221221, end: 20230116
  41. DEXAMETHASONE [Suspect]
     Active Substance: DEXAMETHASONE
     Dosage: 20 MG, QW
     Dates: start: 20230117, end: 20230130
  42. DEXAMETHASONE [Suspect]
     Active Substance: DEXAMETHASONE
     Dosage: 20 MG, QW
     Dates: start: 20230215, end: 20230314
  43. DEXAMETHASONE [Suspect]
     Active Substance: DEXAMETHASONE
     Dosage: 20 MG, QW
     Dates: start: 20230315, end: 20230410
  44. DEXAMETHASONE [Suspect]
     Active Substance: DEXAMETHASONE
     Dosage: 10 MG, QW
     Dates: start: 20230510, end: 20230606
  45. DEXAMETHASONE [Suspect]
     Active Substance: DEXAMETHASONE
     Dosage: 10 MG, QW
     Dates: start: 20230607, end: 20230620
  46. ENOXAPARIN SODIUM [Concomitant]
     Active Substance: ENOXAPARIN SODIUM
     Indication: Prophylaxis
     Dosage: UNK
     Dates: start: 20221018, end: 20230130
  47. PANTOPRAZOLE [Concomitant]
     Active Substance: PANTOPRAZOLE
     Indication: Prophylaxis
     Dosage: UNK
     Dates: start: 20210713
  48. ACYCLOVIR [Concomitant]
     Active Substance: ACYCLOVIR
     Indication: Prophylaxis
     Dosage: UNK
     Dates: start: 20210713
  49. CALCIUM [Concomitant]
     Active Substance: CALCIUM
     Indication: Prophylaxis
     Dosage: UNK
     Dates: start: 20221122
  50. CHOLECALCIFEROL [Concomitant]
     Active Substance: CHOLECALCIFEROL
     Indication: Prophylaxis
     Dosage: UNK
     Dates: start: 20221121
  51. METFORMIN HYDROCHLORIDE [Concomitant]
     Active Substance: METFORMIN HYDROCHLORIDE
     Indication: Type 2 diabetes mellitus
     Dosage: UNK
     Dates: start: 20210713, end: 20230315
  52. INSULIN NOS [Concomitant]
     Active Substance: INSULIN NOS
     Indication: Type 2 diabetes mellitus
     Dosage: UNK
     Dates: start: 20221122, end: 20230315
  53. ATORVASTATIN [Concomitant]
     Active Substance: ATORVASTATIN
     Indication: Prophylaxis
     Dosage: UNK
     Dates: start: 20220516
  54. ZOMETA [Concomitant]
     Active Substance: ZOLEDRONIC ACID
     Indication: Prophylaxis
     Dosage: UNK
     Dates: start: 20221221
  55. AMOXICILLIN [Concomitant]
     Active Substance: AMOXICILLIN
     Dosage: UNK
     Dates: start: 20230131, end: 20230206
  56. OSELTAMIVIR [Concomitant]
     Active Substance: OSELTAMIVIR
     Dosage: UNK
     Dates: start: 20230201, end: 20230208
  57. AMIODARONE [Concomitant]
     Active Substance: AMIODARONE
     Dosage: UNK
     Dates: start: 20230201, end: 20230630
  58. FOLIC ACID [Concomitant]
     Active Substance: FOLIC ACID
     Indication: Prophylaxis
     Dosage: UNK
     Dates: start: 20210713, end: 20221221
  59. BACTRIM [Concomitant]
     Active Substance: SULFAMETHOXAZOLE\TRIMETHOPRIM
     Indication: Prophylaxis
     Dosage: UNK
     Dates: start: 20211213, end: 20221122
  60. ELIQUIS [Concomitant]
     Active Substance: APIXABAN
     Indication: Prophylaxis
     Dosage: UNK
     Dates: start: 20230208
  61. INSULIN ASPART [Concomitant]
     Active Substance: INSULIN ASPART
     Indication: Type 2 diabetes mellitus
     Dosage: UNK
     Dates: start: 20230315
  62. ENOXAPARIN SODIUM [Concomitant]
     Active Substance: ENOXAPARIN SODIUM
     Indication: Prophylaxis
     Dosage: UNK
     Dates: start: 20230131, end: 20230207
  63. FILGRASTIM [Concomitant]
     Active Substance: FILGRASTIM
     Indication: Prophylaxis
     Dosage: UNK
     Dates: start: 20221221, end: 20221223
  64. FILGRASTIM [Concomitant]
     Active Substance: FILGRASTIM
     Dosage: UNK
     Dates: start: 20230117, end: 20230119
  65. FILGRASTIM [Concomitant]
     Active Substance: FILGRASTIM
     Dosage: UNK
     Dates: start: 20230215, end: 20230217
  66. FILGRASTIM [Concomitant]
     Active Substance: FILGRASTIM
     Dosage: UNK
     Dates: start: 20221109
  67. DAFALGAN [Concomitant]
     Active Substance: ACETAMINOPHEN
     Indication: Prophylaxis
     Dosage: UNK
     Dates: start: 20221221
  68. LEVOCETIRIZINE DIHYDROCHLORIDE [Concomitant]
     Active Substance: LEVOCETIRIZINE DIHYDROCHLORIDE
     Indication: Prophylaxis
     Dosage: UNK
     Dates: start: 20221221
  69. TAMSULOSIN [Concomitant]
     Active Substance: TAMSULOSIN
     Dosage: UNK
     Route: 065
     Dates: start: 20230707

REACTIONS (7)
  - Pneumonia [Recovered/Resolved]
  - Neutrophil count decreased [Recovered/Resolved]
  - Neutrophil count decreased [Recovered/Resolved]
  - Neutrophil count decreased [Recovered/Resolved]
  - Pollakiuria [Recovered/Resolved]
  - Neutrophil count decreased [Recovered/Resolved]
  - Neutrophil count decreased [Recovering/Resolving]

NARRATIVE: CASE EVENT DATE: 20221109
